FAERS Safety Report 6547513-4 (Version None)
Quarter: 2010Q1

REPORT INFORMATION
  Report Type: 
  Country: None (occurrence: None)
  Receive Date: 20100122
  Receipt Date: 20100115
  Transmission Date: 20100710
  Serious: Yes (Life-Threatening, Other)
  Sender: FDA-Public Use
  Company Number: GB-GENENTECH-296970

PATIENT
  Sex: Male

DRUGS (13)
  1. LUCENTIS [Suspect]
     Indication: MACULAR DEGENERATION
     Dosage: 0.5 MG, UNK
     Route: 031
     Dates: start: 20080610
  2. LUCENTIS [Suspect]
     Dosage: 0.5 MG, UNK
     Route: 031
     Dates: start: 20090901
  3. LUCENTIS [Suspect]
     Dosage: 0.5 MG, UNK
     Route: 031
     Dates: end: 20091027
  4. LUCENTIS [Suspect]
     Dosage: 0.5 MG, UNK
     Route: 031
     Dates: end: 20090113
  5. PROCHLORPERAZINE [Suspect]
     Indication: DRUG USE FOR UNKNOWN INDICATION
  6. ESOMEPRAZOLE [Concomitant]
     Indication: DRUG USE FOR UNKNOWN INDICATION
  7. RAMIPRIL [Concomitant]
     Indication: DRUG USE FOR UNKNOWN INDICATION
     Dosage: 5 MG, UNK
  8. BISOPROLOL FUMARATE [Concomitant]
     Indication: DRUG USE FOR UNKNOWN INDICATION
     Dosage: 1.25 MG, UNK
     Dates: start: 20090310
  9. SIMVASTATIN [Concomitant]
     Indication: DRUG USE FOR UNKNOWN INDICATION
     Dosage: 40 MG, UNK
  10. AMLODIPINE [Concomitant]
     Indication: DRUG USE FOR UNKNOWN INDICATION
     Dosage: 10 MG, UNK
  11. WARFARIN [Concomitant]
     Indication: DRUG USE FOR UNKNOWN INDICATION
  12. GASTROCOTE (GREAT BRITAIN) [Concomitant]
     Indication: DRUG USE FOR UNKNOWN INDICATION
  13. FUROSEMIDE [Concomitant]
     Indication: DRUG USE FOR UNKNOWN INDICATION

REACTIONS (3)
  - ARTERIOSCLEROSIS [None]
  - LEFT VENTRICULAR FAILURE [None]
  - MYOCARDIAL INFARCTION [None]
